FAERS Safety Report 8951201 (Version 2)
Quarter: 2013Q1

REPORT INFORMATION
  Report Type: Spontaneous
  Country: US (occurrence: None)
  Receive Date: 20121106
  Receipt Date: 20121119
  Transmission Date: 20140127
  Serious: Yes (Hospitalization, Other)
  Sender: FDA-Public Use
  Company Number: 2012PROUSA02200

PATIENT
  Age: 65 Year
  Sex: Male
  Weight: 56.7 kg

DRUGS (8)
  1. PROVENGE (SIPULEUCEL-T) SUSPENSION, 250ML [Suspect]
     Indication: PROSTATE CANCER METASTATIC
     Route: 042
     Dates: start: 20120924, end: 20120924
  2. ASPIRIN (ACETYLSALICYLIC ACID) [Concomitant]
  3. COLACE (DOCUSATE SODIUM) [Concomitant]
  4. IBUPROFEN (IBUPROFEN) [Concomitant]
  5. ATIVAN (LORAZEPAM) [Concomitant]
  6. COMPAZINE SPANSULE (PROCHLORPERAZINE) [Concomitant]
  7. GUAIFENESIN [Concomitant]
  8. DICLOFENAC (DICLOFENAC SODIUM) CREAM, 1% [Concomitant]

REACTIONS (18)
  - Muscle rupture [None]
  - Anaemia [None]
  - Myositis [None]
  - Lymphadenopathy [None]
  - Musculoskeletal pain [None]
  - Diarrhoea [None]
  - Pyrexia [None]
  - Decreased appetite [None]
  - Nausea [None]
  - Constipation [None]
  - Device related infection [None]
  - Cough [None]
  - Chills [None]
  - Streptococcal bacteraemia [None]
  - Ventricular hypokinesia [None]
  - Lymphadenopathy [None]
  - Metastasis [None]
  - Inflammation [None]
